FAERS Safety Report 9089092 (Version 1)
Quarter: 2013Q1

REPORT INFORMATION
  Report Type: Report from Study
  Country: US (occurrence: US)
  Receive Date: 20130130
  Receipt Date: 20130130
  Transmission Date: 20140127
  Serious: No
  Sender: FDA-Public Use
  Company Number: US-ABBOTT-12P-163-0980069-00

PATIENT
  Age: 33 Year
  Sex: Female

DRUGS (2)
  1. HUMIRA [Suspect]
     Indication: CROHN^S DISEASE
     Route: 058
     Dates: start: 20120912
  2. PREDNISONE (NON-ABBOTT) [Concomitant]
     Indication: CROHN^S DISEASE

REACTIONS (2)
  - Dizziness [Recovered/Resolved]
  - Injection site pain [Recovered/Resolved]
